FAERS Safety Report 5353200-0 (Version None)
Quarter: 2007Q2

REPORT INFORMATION
  Report Type: 
  Country: None (occurrence: None)
  Receive Date: 20070608
  Receipt Date: 20070530
  Transmission Date: 20071010
  Serious: Yes (Hospitalization)
  Sender: FDA-Public Use
  Company Number: 2007BI008451

PATIENT
  Age: 47 Year
  Sex: Male
  Weight: 106.5953 kg

DRUGS (12)
  1. NATALIZUMAB [Suspect]
     Indication: MULTIPLE SCLEROSIS
     Dosage: 300 MG; QM; IV
     Route: 042
     Dates: start: 20070411, end: 20070427
  2. SOTALOL HYDROCHLORIDE [Concomitant]
  3. OMEPRAZOLE [Concomitant]
  4. BACLOFEN [Concomitant]
  5. OXYBUTYNIN CHLORIDE [Concomitant]
  6. MULTI-VITAMIN [Concomitant]
  7. METHENAMINE [Concomitant]
  8. CITALOPRAM HYDROBROMIDE [Concomitant]
  9. TEMAZEPAM [Concomitant]
  10. WARFARIN SODIUM [Concomitant]
  11. AMANTADINE HCL [Concomitant]
  12. MELATONIN [Concomitant]

REACTIONS (3)
  - ATRIAL FIBRILLATION [None]
  - DILATATION ATRIAL [None]
  - MITRAL VALVE INCOMPETENCE [None]
